FAERS Safety Report 9882622 (Version 1)
Quarter: 2014Q1

REPORT INFORMATION
  Report Type: Report from Study
  Country: US (occurrence: US)
  Receive Date: 20140207
  Receipt Date: 20140207
  Transmission Date: 20141002
  Serious: Yes (Hospitalization)
  Sender: FDA-Public Use
  Company Number: US-US-EMD SERONO, INC.-7266723

PATIENT
  Sex: Male
  Weight: 58 kg

DRUGS (8)
  1. SEROSTIM [(SOMATROPIN (RDNA ORIGIN) FOR INJECTION)] [Suspect]
     Indication: HIV WASTING SYNDROME
     Route: 058
     Dates: start: 20060101
  2. TRUVADA                            /01398801/ [Concomitant]
     Indication: HIV INFECTION
     Dates: start: 20130605
  3. DARUNAVIR [Concomitant]
     Indication: HIV INFECTION
     Dates: start: 20130605
  4. RITONAVIR [Concomitant]
     Indication: HIV INFECTION
     Dates: start: 20130605
  5. PERCOCET                           /00446701/ [Concomitant]
     Indication: PRODUCT USED FOR UNKNOWN INDICATION
     Dosage: 5/325 MG
     Dates: start: 20130605
  6. FLUCONAZOLE [Concomitant]
     Indication: PRODUCT USED FOR UNKNOWN INDICATION
     Dates: start: 20070321
  7. SEPTRA [Concomitant]
     Indication: PRODUCT USED FOR UNKNOWN INDICATION
     Dates: start: 20070321
  8. LOMOTIL                            /00034001/ [Concomitant]
     Indication: PRODUCT USED FOR UNKNOWN INDICATION
     Dates: start: 20070321

REACTIONS (4)
  - Transaminases increased [Unknown]
  - Blood alkaline phosphatase increased [Unknown]
  - Hypersensitivity [Not Recovered/Not Resolved]
  - Asthenia [Not Recovered/Not Resolved]
